FAERS Safety Report 4708743-7 (Version None)
Quarter: 2005Q3

REPORT INFORMATION
  Report Type: 
  Country: None (occurrence: None)
  Receive Date: 20050707
  Receipt Date: 20050622
  Transmission Date: 20060218
  Serious: Yes (Hospitalization)
  Sender: FDA-Public Use
  Company Number: US-JNJFOC-20050606223

PATIENT
  Age: 54 Year
  Sex: Female

DRUGS (13)
  1. DURAGESIC-100 [Suspect]
     Route: 062
     Dates: start: 20040601
  2. DILANTIN [Concomitant]
     Dates: start: 20010101
  3. NEURONTIN [Concomitant]
     Indication: PAIN
  4. VERAPAMIL [Concomitant]
     Indication: HYPERTENSION
  5. SYNTHROID [Concomitant]
     Indication: HYPOTHYROIDISM
  6. ATIVAN [Concomitant]
  7. PROZAC [Concomitant]
     Indication: DEPRESSION
  8. TRAZADONE [Concomitant]
     Indication: INSOMNIA
  9. FASOMAX [Concomitant]
  10. PRIMIDONE [Concomitant]
     Indication: TREMOR
  11. VIVELLE [Concomitant]
     Indication: HORMONE REPLACEMENT THERAPY
  12. RESTORIL [Concomitant]
     Indication: INSOMNIA
  13. TYLENOL [Concomitant]
     Indication: ARTHRITIS

REACTIONS (6)
  - BLOOD PRESSURE INCREASED [None]
  - CEREBROVASCULAR ACCIDENT [None]
  - CONVULSION [None]
  - DRUG WITHDRAWAL SYNDROME [None]
  - MIGRAINE [None]
  - TRANSIENT ISCHAEMIC ATTACK [None]
